FAERS Safety Report 6440411-6 (Version None)
Quarter: 2009Q4

REPORT INFORMATION
  Report Type: 
  Country: None (occurrence: None)
  Receive Date: 20091113
  Receipt Date: 20091106
  Transmission Date: 20100525
  Serious: Yes (Hospitalization)
  Sender: FDA-Public Use
  Company Number: PHHY2009FR48605

PATIENT
  Age: 65 Year
  Sex: Male

DRUGS (22)
  1. TRILEPTAL [Suspect]
     Dosage: 300 MG, BID
     Route: 048
     Dates: end: 20090422
  2. COVERSYL [Suspect]
     Dosage: 2 MG, QD
  3. COVERSYL [Suspect]
     Dosage: 4MG DAILY
     Dates: start: 20090405
  4. COVERSYL [Suspect]
     Dosage: 4 MG, BID
     Dates: start: 20090407
  5. ESOMEPRAZOLE [Suspect]
     Dosage: 40 MG, QD
  6. LASILIX [Suspect]
     Dosage: 500MG
     Dates: start: 20090408
  7. LASILIX [Suspect]
     Dosage: 250MG
     Dates: start: 20090409, end: 20090411
  8. LASILIX [Suspect]
     Dosage: 40MG
     Dates: start: 20090412, end: 20090414
  9. LASILIX [Suspect]
     Dosage: 20MG
     Dates: start: 20090415
  10. LASILIX [Suspect]
     Dosage: 80MG
     Dates: start: 20090416, end: 20090417
  11. LASILIX [Suspect]
     Dosage: 160MG
     Dates: start: 20090418, end: 20090421
  12. LASILIX [Suspect]
     Dosage: 80MG
     Dates: start: 20090422, end: 20090423
  13. LASILIX [Suspect]
     Dosage: 1G
     Dates: start: 20090424, end: 20090425
  14. LASILIX [Suspect]
     Dosage: 250MG
     Dates: start: 20090426, end: 20090429
  15. KARDEGIC [Concomitant]
     Dosage: 300 MG, QD
  16. TAHOR [Concomitant]
     Dosage: 80 MG, QD
  17. CARDENSIEL [Concomitant]
     Dosage: 2.5MG DAILY
  18. CARDENSIEL [Concomitant]
     Dosage: 7.5MG DAILY
     Dates: start: 20090407
  19. ORBENIN CAP [Concomitant]
     Dosage: 3000MG
     Dates: end: 20090407
  20. ATARAX [Concomitant]
     Dosage: 20 MG, TID
  21. NOVONORM [Concomitant]
     Dosage: 0.5 MG, BID
  22. LOVENOX [Concomitant]
     Dosage: 0.4ML ONCE DAILY
     Route: 058

REACTIONS (9)
  - BLOOD CREATININE INCREASED [None]
  - CARDIAC FAILURE [None]
  - EJECTION FRACTION DECREASED [None]
  - ELECTROLYTE IMBALANCE [None]
  - HYPERKALAEMIA [None]
  - HYPOCHLORAEMIA [None]
  - HYPONATRAEMIA [None]
  - LEFT VENTRICULAR DYSFUNCTION [None]
  - RENAL FAILURE [None]
